FAERS Safety Report 7794364-9 (Version None)
Quarter: 2011Q4

REPORT INFORMATION
  Report Type: 
  Country: None (occurrence: None)
  Receive Date: 20111004
  Receipt Date: 20110922
  Transmission Date: 20120403
  Serious: Yes (Hospitalization, Other)
  Sender: FDA-Public Use
  Company Number: FR-PFIZER INC-2008013166

PATIENT
  Age: 14 Year
  Sex: Male
  Weight: 26 kg

DRUGS (8)
  1. SOMATROPIN [Suspect]
     Dosage: 1 MG, 1X/DAY
     Route: 058
     Dates: start: 20071120, end: 20071124
  2. CYCLOSPORINE [Concomitant]
     Route: 048
     Dates: start: 20080124, end: 20080208
  3. SOMATROPIN [Suspect]
     Indication: GROWTH RETARDATION
     Dosage: 0.9 MG, 1X/DAY
     Route: 058
     Dates: start: 20070428, end: 20070702
  4. SODIUM BENZOATE [Concomitant]
     Route: 048
     Dates: start: 20080124
  5. SOMATROPIN [Suspect]
     Dosage: 0.6 MG, 1X/DAY
     Route: 058
     Dates: start: 20071114, end: 20071119
  6. CITRULLINE [Concomitant]
     Route: 048
     Dates: start: 19941001
  7. SOMATROPIN [Suspect]
     Dosage: 1.2 MG, 1X/DAY
     Route: 058
     Dates: start: 20071125, end: 20080207
  8. SOMATROPIN [Suspect]
     Dosage: 1 MG, 1X/DAY
     Route: 058
     Dates: start: 20070703, end: 20071105

REACTIONS (3)
  - HISTIOCYTOSIS HAEMATOPHAGIC [None]
  - VIRAL INFECTION [None]
  - WEIGHT DECREASED [None]
